FAERS Safety Report 5034522-X (Version None)
Quarter: 2006Q2

REPORT INFORMATION
  Report Type: 
  Country: None (occurrence: None)
  Receive Date: 20060623
  Receipt Date: 20060623
  Transmission Date: 20061013
  Serious: Yes (Other)
  Sender: FDA-Public Use
  Company Number: None

PATIENT
  Sex: Female

DRUGS (2)
  1. ALLSOLUTIONS NEUTRAL SODIUM FLUORIDE FOAM [Suspect]
     Indication: DENTAL FLUORIDE THERAPY
     Dosage: TOPICAL 060, 2 G
     Route: 061
  2. 2.0% SODIUM FLUORIDE (0.9% FLUORIDE ION) [Suspect]
     Dosage: 1 TREATMENT/4 TIMES YR

REACTIONS (4)
  - DYSPNOEA [None]
  - PRURITUS [None]
  - RASH [None]
  - THROAT TIGHTNESS [None]
